FAERS Safety Report 21451767 (Version 6)
Quarter: 2023Q2

REPORT INFORMATION
  Report Type: Spontaneous
  Country: US (occurrence: US)
  Receive Date: 20221013
  Receipt Date: 20230517
  Transmission Date: 20230721
  Serious: No
  Sender: FDA-Public Use
  Company Number: US-BRISTOL-MYERS SQUIBB COMPANY-2022-118428

PATIENT
  Age: 74 Year
  Sex: Female

DRUGS (2)
  1. IDHIFA [Suspect]
     Active Substance: ENASIDENIB MESYLATE
     Indication: Myelodysplastic syndrome with excess blasts
     Route: 048
     Dates: start: 20220915
  2. IDHIFA [Suspect]
     Active Substance: ENASIDENIB MESYLATE
     Indication: Pancytopenia
     Route: 048
     Dates: start: 20220915

REACTIONS (9)
  - White blood cell count increased [Unknown]
  - Constipation [Unknown]
  - Blood potassium decreased [Unknown]
  - Vomiting [Unknown]
  - Rash [Unknown]
  - Off label use [Unknown]
  - Drug hypersensitivity [Unknown]
  - Intentional product use issue [Unknown]
  - Full blood count abnormal [Recovering/Resolving]
